FAERS Safety Report 16694984 (Version 2)
Quarter: 2019Q4

REPORT INFORMATION
  Report Type: Spontaneous
  Country: US (occurrence: US)
  Receive Date: 20190812
  Receipt Date: 20191002
  Transmission Date: 20200122
  Serious: No
  Sender: FDA-Public Use
  Company Number: US-ACTELION-A-US2019-194018

PATIENT
  Age: 12 Year
  Sex: Male

DRUGS (13)
  1. SYNTHROID [Concomitant]
     Active Substance: LEVOTHYROXINE SODIUM
  2. XOPENEX [Concomitant]
     Active Substance: LEVALBUTEROL HYDROCHLORIDE
     Dosage: UNK, PRN
  3. VIAGRA [Concomitant]
     Active Substance: SILDENAFIL CITRATE
  4. TRACLEER [Suspect]
     Active Substance: BOSENTAN
     Indication: PULMONARY ARTERIAL HYPERTENSION
     Dosage: 46.875 MG, BID
     Route: 048
     Dates: start: 2015
  5. SILDENAFIL. [Suspect]
     Active Substance: SILDENAFIL
     Indication: PRODUCT USED FOR UNKNOWN INDICATION
     Dosage: 46 MG
     Route: 065
  6. FISH OIL [Concomitant]
     Active Substance: FISH OIL
  7. FLOVENT [Concomitant]
     Active Substance: FLUTICASONE PROPIONATE
  8. PREVACID [Concomitant]
     Active Substance: LANSOPRAZOLE
  9. LASIX [Concomitant]
     Active Substance: FUROSEMIDE
  10. NASACORT [Concomitant]
     Active Substance: TRIAMCINOLONE ACETONIDE
  11. TRACLEER [Suspect]
     Active Substance: BOSENTAN
     Dosage: 46.7 MG, BID
     Route: 048
  12. MULTIVITAMIN [Concomitant]
     Active Substance: VITAMINS
  13. OXYGEN. [Suspect]
     Active Substance: OXYGEN
     Indication: PRODUCT USED FOR UNKNOWN INDICATION
     Dosage: 1 LITER AT NIGHT
     Route: 065

REACTIONS (15)
  - Brain natriuretic peptide abnormal [Unknown]
  - Right ventricular enlargement [Unknown]
  - Presyncope [Unknown]
  - Fatigue [Unknown]
  - Cardiac hypertrophy [Unknown]
  - Right atrial enlargement [Unknown]
  - Catheterisation cardiac [Not Recovered/Not Resolved]
  - Bundle branch block right [Unknown]
  - Diastolic dysfunction [Unknown]
  - Syncope [Unknown]
  - QRS axis abnormal [Unknown]
  - Tricuspid valve incompetence [Unknown]
  - Right ventricular systolic pressure decreased [Unknown]
  - Cardiac disorder [Unknown]
  - Pulmonary hypertension [Unknown]

NARRATIVE: CASE EVENT DATE: 20190723
